FAERS Safety Report 5186255-7 (Version None)
Quarter: 2006Q4

REPORT INFORMATION
  Report Type: 
  Country: None (occurrence: None)
  Receive Date: 20061212
  Receipt Date: 20061201
  Transmission Date: 20070319
  Serious: Yes (Life-Threatening, Other)
  Sender: FDA-Public Use
  Company Number: 2006BH014842

PATIENT
  Age: 57 Year
  Sex: Female

DRUGS (3)
  1. GAMMAGARD S/D [Suspect]
     Indication: IMMUNODEFICIENCY COMMON VARIABLE
     Dosage: 50 ML; ONCE; IV
     Route: 042
     Dates: start: 20061026, end: 20061026
  2. METHYLPREDNISOLONE [Concomitant]
  3. DEXAMETHASONE SODIUM PHOSPHATE [Concomitant]

REACTIONS (9)
  - ASTHENIA [None]
  - DIZZINESS [None]
  - DYSPNOEA [None]
  - FEELING COLD [None]
  - HEART RATE INCREASED [None]
  - HOT FLUSH [None]
  - HYPERHIDROSIS [None]
  - PALLOR [None]
  - RESPIRATORY RATE INCREASED [None]
